FAERS Safety Report 9347800 (Version 1)
Quarter: 2013Q2

REPORT INFORMATION
  Report Type: Spontaneous
  Country: US (occurrence: None)
  Receive Date: 20130612
  Receipt Date: 20130612
  Transmission Date: 20140414
  Serious: Yes (Death, Hospitalization)
  Sender: FDA-Public Use
  Company Number: None

PATIENT
  Age: 18 Year
  Sex: Female
  Weight: 88.5 kg

DRUGS (7)
  1. CYTARABINE [Suspect]
     Dates: end: 20130523
  2. DAUNORUBICIN [Suspect]
     Dates: end: 20130315
  3. ENALAPRIL [Concomitant]
  4. L-ASPARAGINASE [Concomitant]
  5. LEVOFLOXACIN [Concomitant]
  6. NORETHINDRONE [Concomitant]
  7. SPIRONOLACTONE [Concomitant]

REACTIONS (26)
  - Cardiotoxicity [None]
  - Abdominal pain [None]
  - Gastrointestinal sounds abnormal [None]
  - Vomiting [None]
  - Hyponatraemia [None]
  - Inappropriate antidiuretic hormone secretion [None]
  - Weight increased [None]
  - Muscular weakness [None]
  - Muscular weakness [None]
  - Dysarthria [None]
  - Pneumatosis intestinalis [None]
  - Arterial thrombosis [None]
  - Venous thrombosis [None]
  - Lung disorder [None]
  - Pulmonary thrombosis [None]
  - Renal disorder [None]
  - Gastrointestinal disorder [None]
  - Liver disorder [None]
  - Spleen disorder [None]
  - Hypoperfusion [None]
  - Tachycardia [None]
  - Pulmonary oedema [None]
  - Blood pressure decreased [None]
  - Pulseless electrical activity [None]
  - Renal impairment [None]
  - Condition aggravated [None]
